FAERS Safety Report 6529245-1 (Version None)
Quarter: 2010Q1

REPORT INFORMATION
  Report Type: 
  Country: None (occurrence: None)
  Receive Date: 20100107
  Receipt Date: 20091231
  Transmission Date: 20100710
  Serious: Yes (Other)
  Sender: FDA-Public Use
  Company Number: GB-ROCHE-677416

PATIENT
  Age: 3 Year
  Sex: Female

DRUGS (1)
  1. TAMIFLU [Suspect]
     Indication: DRUG USE FOR UNKNOWN INDICATION
     Dosage: DOSE: STANDARD DOSE FOR A 14 KG WEIGHT CHILD
     Route: 065
     Dates: start: 20091224

REACTIONS (2)
  - DELIRIUM [None]
  - HYPERSENSITIVITY [None]
